FAERS Safety Report 13618078 (Version 1)
Quarter: 2017Q2

REPORT INFORMATION
  Report Type: Spontaneous
  Country: US (occurrence: US)
  Receive Date: 20170606
  Receipt Date: 20170606
  Transmission Date: 20170830
  Serious: Yes (Death, Other)
  Sender: FDA-Public Use
  Company Number: US-APOTEX-2017AP012772

PATIENT
  Age: 73 Year
  Sex: Male

DRUGS (1)
  1. AMIODARONE HYDROCHLORIDE. [Suspect]
     Active Substance: AMIODARONE HYDROCHLORIDE
     Indication: PRODUCT USED FOR UNKNOWN INDICATION
     Route: 065

REACTIONS (5)
  - Pneumonia [Fatal]
  - Chronic obstructive pulmonary disease [Fatal]
  - Pulmonary toxicity [Fatal]
  - Acute respiratory distress syndrome [Fatal]
  - Hypoxia [Fatal]
